FAERS Safety Report 19524771 (Version 1)
Quarter: 2021Q3

REPORT INFORMATION
  Report Type: Spontaneous
  Country: US (occurrence: US)
  Receive Date: 20210712
  Receipt Date: 20210712
  Transmission Date: 20211014
  Serious: Yes (Other)
  Sender: FDA-Public Use
  Company Number: None

PATIENT
  Age: 72 Year
  Sex: Female
  Weight: 58.05 kg

DRUGS (2)
  1. CUVITRU [Suspect]
     Active Substance: HUMAN IMMUNOGLOBULIN G
     Indication: IMMUNODEFICIENCY COMMON VARIABLE
     Dosage: ?          OTHER FREQUENCY:Q2WKS;?
     Route: 042
     Dates: start: 20170401
  2. CUVITRU [Suspect]
     Active Substance: HUMAN IMMUNOGLOBULIN G
     Indication: IMMUNODEFICIENCY COMMON VARIABLE
     Dosage: ?          OTHER FREQUENCY:Q2WKS;?
     Route: 042
     Dates: start: 20170401

REACTIONS (7)
  - Infusion site warmth [None]
  - Headache [None]
  - Infusion site pain [None]
  - Infusion site erythema [None]
  - Infusion related reaction [None]
  - Treatment noncompliance [None]
  - Throat tightness [None]

NARRATIVE: CASE EVENT DATE: 20210430
